FAERS Safety Report 7445097 (Version 8)
Quarter: 2012Q4

REPORT INFORMATION
  Report Type: Report from Study
  Country: JP (occurrence: JP)
  Receive Date: 20100629
  Receipt Date: 20121207
  Transmission Date: 20130627
  Serious: Yes (Hospitalization)
  Sender: FDA-Public Use
  Company Number: JP-ROCHE-GNE303284

PATIENT
  Age: 81 Year
  Sex: Male

DRUGS (19)
  1. RANIBIZUMAB [Suspect]
     Indication: AGE-RELATED MACULAR DEGENERATION
     Dosage: 0.05 mL, UNK
     Route: 050
     Dates: start: 20091106
  2. RANIBIZUMAB [Suspect]
     Dosage: 0.05 mL, UNK
     Route: 050
     Dates: start: 20091204
  3. RANIBIZUMAB [Suspect]
     Dosage: 0.05 mL, UNK
     Route: 050
     Dates: start: 20100108
  4. RANIBIZUMAB [Suspect]
     Dosage: 0.05 mL, UNK
     Route: 050
     Dates: start: 20100521
  5. VISUDYNE [Suspect]
     Indication: AGE-RELATED MACULAR DEGENERATION
     Dosage: 1 DF, UNK
     Route: 042
     Dates: start: 200410, end: 200911
  6. VISUDYNE [Suspect]
     Dosage: 1 DF, UNK
     Route: 042
     Dates: start: 20100522
  7. MOXIFLOXACIN HYDROCHLORIDE [Concomitant]
     Indication: PRODUCT USED FOR UNKNOWN INDICATION
     Dosage: UNK
     Route: 065
     Dates: start: 200911, end: 201005
  8. RINDERON A [Concomitant]
     Indication: PRODUCT USED FOR UNKNOWN INDICATION
     Dosage: UNK
     Route: 065
     Dates: start: 20100521, end: 20100603
  9. SOLANTAL [Concomitant]
     Indication: PRODUCT USED FOR UNKNOWN INDICATION
     Dosage: UNK
     Route: 065
     Dates: start: 20100521, end: 20100526
  10. CALCIUM CARBONATE [Concomitant]
     Indication: PRODUCT USED FOR UNKNOWN INDICATION
     Dosage: UNK
     Route: 065
     Dates: start: 20100521, end: 20100526
  11. COPTIS [Concomitant]
     Indication: PRODUCT USED FOR UNKNOWN INDICATION
     Dosage: UNK
     Route: 065
     Dates: start: 20100521, end: 20100526
  12. COPTIS TRIFOLIA [Concomitant]
     Indication: PRODUCT USED FOR UNKNOWN INDICATION
     Dosage: UNK
     Route: 065
     Dates: start: 20100521, end: 20100526
  13. DIASTASE [Concomitant]
     Indication: PRODUCT USED FOR UNKNOWN INDICATION
     Dosage: UNK
     Route: 065
     Dates: start: 20100521, end: 20100526
  14. HERBAL EXTRACT [Concomitant]
     Indication: PRODUCT USED FOR UNKNOWN INDICATION
     Dosage: UNK
     Route: 065
     Dates: start: 20100521, end: 20100526
  15. MAGNESIUM ALUMINUM SILICATE [Concomitant]
     Indication: PRODUCT USED FOR UNKNOWN INDICATION
     Dosage: UNK
     Route: 065
     Dates: start: 20100521, end: 20100526
  16. SODIUM BICARBONATE [Concomitant]
     Indication: PRODUCT USED FOR UNKNOWN INDICATION
     Dosage: UNK
     Route: 065
     Dates: start: 20100521, end: 20100526
  17. MEIACT [Concomitant]
     Indication: PRODUCT USED FOR UNKNOWN INDICATION
     Dosage: UNK
     Route: 065
     Dates: start: 20100521, end: 20100526
  18. HYALEIN [Concomitant]
     Indication: PRODUCT USED FOR UNKNOWN INDICATION
     Dosage: UNK
     Route: 065
     Dates: start: 20100628, end: 20100628
  19. TARIVID [Concomitant]
     Indication: PRODUCT USED FOR UNKNOWN INDICATION
     Dosage: UNK
     Route: 065
     Dates: start: 20100628, end: 20100628

REACTIONS (2)
  - Cerebellar infarction [Recovered/Resolved]
  - Incontinence [Unknown]
